FAERS Safety Report 15485104 (Version 2)
Quarter: 2019Q4

REPORT INFORMATION
  Report Type: Spontaneous
  Country: US (occurrence: US)
  Receive Date: 20181010
  Receipt Date: 20191017
  Transmission Date: 20200122
  Serious: No
  Sender: FDA-Public Use
  Company Number: US-ROCHE-2131278

PATIENT
  Sex: Female

DRUGS (3)
  1. ESBRIET [Suspect]
     Active Substance: PIRFENIDONE
     Dosage: FOR 1 WEEK
     Route: 048
  2. ESBRIET [Suspect]
     Active Substance: PIRFENIDONE
     Dosage: DAILY
     Route: 048
  3. ESBRIET [Suspect]
     Active Substance: PIRFENIDONE
     Indication: RHINITIS ALLERGIC
     Dosage: FOR 1 WEEK
     Route: 048
     Dates: start: 20180531

REACTIONS (5)
  - Burning sensation [Not Recovered/Not Resolved]
  - Intentional product use issue [Unknown]
  - Chest pain [Recovered/Resolved with Sequelae]
  - Off label use [Unknown]
  - Dyspepsia [Not Recovered/Not Resolved]
